FAERS Safety Report 8377456-5 (Version None)
Quarter: 2012Q2

REPORT INFORMATION
  Report Type: 
  Country: None (occurrence: None)
  Receive Date: 20120522
  Receipt Date: 20111011
  Transmission Date: 20120825
  Serious: No
  Sender: FDA-Public Use
  Company Number: US-ASTRAZENECA-2011SE61424

PATIENT
  Age: 64 Year
  Sex: Female

DRUGS (31)
  1. NORVASC [Concomitant]
  2. BONIVA [Concomitant]
  3. ALEVE PO [Concomitant]
     Indication: PAIN
  4. POTASSIUM CHLORIDE [Concomitant]
  5. HYDRODIURIL [Concomitant]
  6. BYSTOLIC [Concomitant]
  7. SINGULAIR [Concomitant]
     Indication: MULTIPLE ALLERGIES
  8. OMNICEF [Concomitant]
  9. PERCOCET [Concomitant]
  10. ALDACTONE [Concomitant]
  11. GLUCOPHAGE [Concomitant]
     Indication: TYPE 2 DIABETES MELLITUS
  12. NASONEX [Concomitant]
  13. LANTUS [Concomitant]
  14. VENTOLIN HFA [Concomitant]
     Indication: WHEEZING
  15. ADVAIR DISKUS 100/50 [Concomitant]
  16. LYRICA [Concomitant]
  17. LEVAQUIN [Concomitant]
  18. ZYRTEC [Concomitant]
  19. NOVOLOG [Concomitant]
  20. FLEXERIL [Concomitant]
     Indication: BACK PAIN
  21. EFFEXOR [Concomitant]
     Indication: DEPRESSION
  22. ANUSOL HC [Concomitant]
  23. SYNTHROID [Concomitant]
     Indication: THYROID DISORDER
  24. MEDROL PAK [Concomitant]
  25. ACIPHEX PO [Concomitant]
     Indication: GASTROOESOPHAGEAL REFLUX DISEASE
  26. LORCET-HD [Concomitant]
     Indication: PAIN
  27. MUCINEX [Concomitant]
  28. PLENDIL PO [Concomitant]
     Indication: BLOOD PRESSURE ABNORMAL
  29. PRILOSEC [Suspect]
     Indication: GASTROOESOPHAGEAL REFLUX DISEASE
     Route: 048
  30. VALIUM [Concomitant]
  31. BENICAR HCT [Concomitant]

REACTIONS (6)
  - BACK PAIN [None]
  - HYPERTENSION [None]
  - CHRONIC OBSTRUCTIVE PULMONARY DISEASE [None]
  - GENERALISED ANXIETY DISORDER [None]
  - DIABETES MELLITUS [None]
  - HYPOKALAEMIA [None]
